FAERS Safety Report 12197744 (Version 2)
Quarter: 2016Q3

REPORT INFORMATION
  Report Type: Spontaneous
  Country: US (occurrence: US)
  Receive Date: 20160322
  Receipt Date: 20160920
  Transmission Date: 20161109
  Serious: Yes (Other)
  Sender: FDA-Public Use
  Company Number: US-DRREDDYS-USA/USA/16/0078029

PATIENT
  Age: 45 Year
  Sex: Female
  Weight: 53 kg

DRUGS (2)
  1. MOXIFLOXACIN. [Suspect]
     Active Substance: MOXIFLOXACIN
     Indication: PURULENT DISCHARGE
     Route: 048
  2. RADIOACTIVE IODIDE [Concomitant]
     Indication: HYPERTHYROIDISM
     Route: 065

REACTIONS (10)
  - Seizure [Unknown]
  - Pain in extremity [Unknown]
  - Muscle spasms [Unknown]
  - Anxiety [Unknown]
  - Agitation [Unknown]
  - Blood pressure increased [Unknown]
  - Palpitations [Unknown]
  - Nausea [Unknown]
  - Tremor [Unknown]
  - Nervousness [Unknown]
